FAERS Safety Report 8866113 (Version 1)
Quarter: 2012Q4

REPORT INFORMATION
  Report Type: 
  Country: TN (occurrence: TN)
  Receive Date: 20121025
  Receipt Date: 20121025
  Transmission Date: 20130627
  Serious: Yes (Other)
  Sender: FDA-Public Use
  Company Number: TN-MYLANLABS-2012S1021483

PATIENT
  Sex: Male

DRUGS (4)
  1. AMIODARONE [Suspect]
     Indication: ARRHYTHMIA SUPRAVENTRICULAR
     Dosage: 200 mg/day, 5 days a week
     Route: 065
     Dates: start: 2003, end: 20111020
  2. ACENOCOUMAROL [Concomitant]
     Indication: ARRHYTHMIA SUPRAVENTRICULAR
     Dosage: 2 mg/day
     Route: 065
     Dates: start: 2003
  3. RAMIPRIL [Concomitant]
     Indication: HYPERTENSION
     Dosage: 5 mg/day
     Route: 065
     Dates: start: 2007
  4. ALFUZOSIN [Concomitant]
     Indication: PROSTATIC ADENOMA
     Dosage: 10 mg/day
     Route: 065
     Dates: start: 2010

REACTIONS (1)
  - Non-alcoholic steatohepatitis [Recovered/Resolved]
